FAERS Safety Report 5800143-1 (Version None)
Quarter: 2008Q3

REPORT INFORMATION
  Report Type: 
  Country: None (occurrence: None)
  Receive Date: 20080703
  Receipt Date: 20080619
  Transmission Date: 20090109
  Serious: Yes (Other)
  Sender: FDA-Public Use
  Company Number: JP-ROCHE-564190

PATIENT
  Sex: Female
  Weight: 13 kg

DRUGS (4)
  1. TAMIFLU [Suspect]
     Indication: INFLUENZA
     Dosage: FORM:DRY SYRUP
     Route: 048
     Dates: start: 20070317
  2. PERIACTIN [Concomitant]
     Route: 048
     Dates: start: 20070316, end: 20070318
  3. CALONAL [Concomitant]
     Dosage: 200MG X 2/3 PIECE
     Route: 054
     Dates: start: 20070316, end: 20070317
  4. NAUZELIN [Concomitant]
     Route: 054
     Dates: start: 20070317

REACTIONS (8)
  - ABNORMAL BEHAVIOUR [None]
  - AGGRESSION [None]
  - CHILLS [None]
  - CRYING [None]
  - NIGHTMARE [None]
  - PERFORMANCE FEAR [None]
  - SLEEP ATTACKS [None]
  - SOMNAMBULISM [None]
